FAERS Safety Report 24595217 (Version 3)
Quarter: 2024Q4

REPORT INFORMATION
  Report Type: Spontaneous
  Country: US (occurrence: US)
  Receive Date: 20241108
  Receipt Date: 20241221
  Transmission Date: 20250115
  Serious: No
  Sender: ABBVIE
  Company Number: US-ABBVIE-5989088

PATIENT
  Age: 73 Year
  Sex: Male

DRUGS (1)
  1. CREON [Suspect]
     Active Substance: PANCRELIPASE AMYLASE\PANCRELIPASE LIPASE\PANCRELIPASE PROTEASE
     Indication: Diarrhoea
     Dosage: 4 CAPSULES 36K PER MEAL AND 3 CAPSULES FOR SNACK
     Route: 048
     Dates: start: 2023

REACTIONS (6)
  - Therapeutic product effect incomplete [Unknown]
  - Diarrhoea [Recovering/Resolving]
  - Faeces hard [Unknown]
  - Cardiac disorder [Unknown]
  - Off label use [Unknown]
  - Off label use [Unknown]

NARRATIVE: CASE EVENT DATE: 20240101
